FAERS Safety Report 15172915 (Version 1)
Quarter: 2018Q3

REPORT INFORMATION
  Report Type: Spontaneous
  Country: US (occurrence: US)
  Receive Date: 20180720
  Receipt Date: 20180720
  Transmission Date: 20181010
  Serious: No
  Sender: FDA-Public Use
  Company Number: US-ROCHE-2040390

PATIENT
  Age: 60 Year
  Sex: Female
  Weight: 61.29 kg

DRUGS (1)
  1. BONIVA [Suspect]
     Active Substance: IBANDRONATE SODIUM
     Indication: OSTEOPOROSIS
     Dosage: ONGOING: UNKNOWN, SECOND DOSE IN 08/DEC/2017 VIA INTRAMUSCULAR ROUTE
     Route: 042
     Dates: start: 2017

REACTIONS (5)
  - Incorrect route of drug administration [Unknown]
  - Erythema [Not Recovered/Not Resolved]
  - Swelling [Not Recovered/Not Resolved]
  - Mass [Not Recovered/Not Resolved]
  - Pain [Not Recovered/Not Resolved]

NARRATIVE: CASE EVENT DATE: 20171208
